FAERS Safety Report 9106062 (Version 1)
Quarter: 2013Q1

REPORT INFORMATION
  Report Type: Spontaneous
  Country: US (occurrence: US)
  Receive Date: 20130220
  Receipt Date: 20130220
  Transmission Date: 20140127
  Serious: Yes (Hospitalization, Other)
  Sender: FDA-Public Use
  Company Number: CHPA2012US019072

PATIENT
  Age: 63 Year
  Sex: Female

DRUGS (3)
  1. IBUPROFEN [Suspect]
     Indication: NECK PAIN
     Dosage: 800 MG, TID
     Route: 048
     Dates: end: 201101
  2. SAM-E [Concomitant]
     Indication: ROUTINE HEALTH MAINTENANCE
     Dosage: UNK, QD
     Route: 048
  3. LAXATIVES [Concomitant]
     Indication: CONSTIPATION
     Dosage: UNK, PRN
     Route: 048

REACTIONS (11)
  - Ulcer [Recovered/Resolved]
  - Spinal cord compression [Not Recovered/Not Resolved]
  - Carpal tunnel syndrome [Unknown]
  - Neck injury [Unknown]
  - Back pain [Recovered/Resolved]
  - Sciatica [Recovered/Resolved]
  - Dyspepsia [Recovered/Resolved]
  - Constipation [Recovered/Resolved]
  - Local swelling [Recovered/Resolved]
  - Swelling [Recovered/Resolved]
  - Overdose [Unknown]
